FAERS Safety Report 9124088 (Version 3)
Quarter: 2013Q2

REPORT INFORMATION
  Report Type: Spontaneous
  Country: DE (occurrence: DE)
  Receive Date: 20130227
  Receipt Date: 20130510
  Transmission Date: 20140414
  Serious: Yes (Hospitalization, Other)
  Sender: FDA-Public Use
  Company Number: DE-ALEXION PHARMACEUTICALS INC.-A201300297

PATIENT
  Sex: Female

DRUGS (11)
  1. SOLIRIS 300MG [Suspect]
     Indication: HAEMOLYTIC URAEMIC SYNDROME
     Dosage: 900 MG, QW
     Route: 042
     Dates: start: 20120224, end: 20120315
  2. SOLIRIS 300MG [Suspect]
     Dosage: 1200 MG, Q2W
     Route: 042
     Dates: start: 20120323
  3. ARANESP [Concomitant]
     Dosage: 80 ?G, QMONTH
     Route: 058
  4. FERRO SANOL DUADENOL [Concomitant]
     Dosage: 1 DF, QD
     Route: 048
  5. DECORTIN-H 5 [Concomitant]
     Dosage: UNK, DECREASING DOSE, QD
     Route: 048
  6. DEKRISTOL [Concomitant]
     Dosage: 20000 IU, QW
  7. NEPHROTRANS [Concomitant]
     Dosage: 500 MG, TID
     Route: 048
  8. AMLODIPINE [Concomitant]
     Dosage: 5 MG, BID
  9. DOXAZOSIN [Concomitant]
     Dosage: 2 MG, BID
     Route: 048
  10. ENALAPRIL [Concomitant]
     Dosage: 10 MG, BID
     Route: 048
  11. BELOC-ZOK [Concomitant]
     Dosage: UNK, BID
     Route: 048

REACTIONS (2)
  - Hypertensive crisis [Unknown]
  - Hypertension [Unknown]
